FAERS Safety Report 5565643-0 (Version None)
Quarter: 2007Q4

REPORT INFORMATION
  Report Type: 
  Country: None (occurrence: None)
  Receive Date: 20071218
  Receipt Date: 20071204
  Transmission Date: 20080405
  Serious: Yes (Other)
  Sender: FDA-Public Use
  Company Number: US-PFIZER INC-2007105273

PATIENT
  Sex: Female
  Weight: 86.363 kg

DRUGS (8)
  1. CHANTIX [Suspect]
     Indication: EX-SMOKER
  2. PREDNISONE [Suspect]
  3. METHOTREXATE [Concomitant]
  4. VENLAFAXIINE HCL [Concomitant]
  5. GLIPIZIDE [Concomitant]
  6. PREVACID [Concomitant]
  7. XANAX [Concomitant]
  8. PRINZIDE [Concomitant]

REACTIONS (17)
  - ABDOMINAL PAIN UPPER [None]
  - ARTHRITIS [None]
  - AUTOIMMUNE DISORDER [None]
  - BACK INJURY [None]
  - BLOOD POTASSIUM DECREASED [None]
  - BLOOD PRESSURE FLUCTUATION [None]
  - CHEST PAIN [None]
  - DIZZINESS [None]
  - FALL [None]
  - INFECTION [None]
  - IRRITABILITY [None]
  - LIMB INJURY [None]
  - MALAISE [None]
  - MUSCLE SPASMS [None]
  - PAIN IN EXTREMITY [None]
  - PSORIASIS [None]
  - VOMITING [None]
